FAERS Safety Report 23217465 (Version 1)
Quarter: 2023Q4

REPORT INFORMATION
  Report Type: Spontaneous
  Country: KZ (occurrence: KZ)
  Receive Date: 20231122
  Receipt Date: 20231122
  Transmission Date: 20240110
  Serious: Yes (Death, Hospitalization, Other)
  Sender: FDA-Public Use
  Company Number: KZ-BAYER-2023A165326

PATIENT
  Age: 28 Year
  Sex: Female

DRUGS (3)
  1. ASPIRIN [Suspect]
     Active Substance: ASPIRIN
     Dosage: UNK
  2. MOXIFLOXACIN [Suspect]
     Active Substance: MOXIFLOXACIN
     Dosage: UNK
  3. ENOXAPARIN [Concomitant]
     Active Substance: ENOXAPARIN

REACTIONS (9)
  - Pulmonary embolism [Fatal]
  - Disseminated intravascular coagulation [Fatal]
  - Hypotension [None]
  - Labelled drug-drug interaction issue [None]
  - Off label use [None]
  - Maternal exposure during pregnancy [None]
  - Contraindicated product administered [None]
  - Premature delivery [None]
  - Drug ineffective [None]
